FAERS Safety Report 22038904 (Version 2)
Quarter: 2024Q1

REPORT INFORMATION
  Report Type: Spontaneous
  Country: US (occurrence: US)
  Receive Date: 20230227
  Receipt Date: 20240209
  Transmission Date: 20240409
  Serious: No
  Sender: FDA-Public Use
  Company Number: US-IGSA-BIG0020007

PATIENT
  Age: 51 Year
  Sex: Female
  Weight: 48 kg

DRUGS (14)
  1. PROLASTIN-C LIQUID [Suspect]
     Active Substance: .ALPHA.1-PROTEINASE INHIBITOR HUMAN
     Indication: Alpha-1 antitrypsin deficiency
     Dosage: 2880 MILLIGRAM, Q.WK.
     Route: 042
     Dates: start: 20220807, end: 20220807
  2. PROLASTIN-C LIQUID [Suspect]
     Active Substance: .ALPHA.1-PROTEINASE INHIBITOR HUMAN
     Dosage: 2880 MILLIGRAM, Q.WK.
     Route: 042
     Dates: start: 20190117
  3. LACTOBACILLUS ACIDOPHILUS [Concomitant]
     Active Substance: LACTOBACILLUS ACIDOPHILUS
  4. DILTIAZEM [Concomitant]
     Active Substance: DILTIAZEM
  5. FAMOTIDINE [Concomitant]
     Active Substance: FAMOTIDINE
  6. FUROSEMIDE [Concomitant]
     Active Substance: FUROSEMIDE
  7. GABAPENTIN [Concomitant]
     Active Substance: GABAPENTIN
  8. OMEPRAZOLE [Concomitant]
     Active Substance: OMEPRAZOLE
  9. SPIRIVA [Concomitant]
     Active Substance: TIOTROPIUM BROMIDE MONOHYDRATE
  10. SUBOXONE [Concomitant]
     Active Substance: BUPRENORPHINE HYDROCHLORIDE\NALOXONE HYDROCHLORIDE
  11. SYMBICORT [Concomitant]
     Active Substance: BUDESONIDE\FORMOTEROL FUMARATE DIHYDRATE
  12. VENTOLIN HFA [Concomitant]
     Active Substance: ALBUTEROL SULFATE
  13. VITAMIN C [Concomitant]
     Active Substance: ASCORBIC ACID
  14. XARELTO [Concomitant]
     Active Substance: RIVAROXABAN

REACTIONS (4)
  - Dyspnoea [Unknown]
  - Throat tightness [Unknown]
  - Chest pain [Unknown]
  - Heart rate increased [Recovering/Resolving]

NARRATIVE: CASE EVENT DATE: 20220807
